FAERS Safety Report 20649360 (Version 2)
Quarter: 2022Q2

REPORT INFORMATION
  Report Type: Spontaneous
  Country: JP (occurrence: JP)
  Receive Date: 20220329
  Receipt Date: 20220412
  Transmission Date: 20220721
  Serious: Yes (Other)
  Sender: FDA-Public Use
  Company Number: JP-DSJP-DSJ-2022-110101

PATIENT
  Age: 71 Year
  Sex: Male
  Weight: 40.5 kg

DRUGS (4)
  1. ENHERTU [Suspect]
     Active Substance: FAM-TRASTUZUMAB DERUXTECAN-NXKI
     Indication: Gastric cancer recurrent
     Dosage: 250MG
     Route: 065
     Dates: start: 20201030, end: 20201030
  2. ENHERTU [Suspect]
     Active Substance: FAM-TRASTUZUMAB DERUXTECAN-NXKI
     Dosage: 230MG
     Route: 065
  3. ENHERTU [Suspect]
     Active Substance: FAM-TRASTUZUMAB DERUXTECAN-NXKI
     Dosage: 230MG
     Route: 065
  4. ENHERTU [Suspect]
     Active Substance: FAM-TRASTUZUMAB DERUXTECAN-NXKI
     Dosage: 230MG
     Route: 065

REACTIONS (14)
  - Inguinal hernia [Unknown]
  - White blood cell count decreased [Unknown]
  - Decreased appetite [Unknown]
  - Eastern Cooperative Oncology Group performance status worsened [Unknown]
  - Diarrhoea [Unknown]
  - White blood cell count decreased [Unknown]
  - Cachexia [Unknown]
  - Metastases to central nervous system [Unknown]
  - Brain oedema [Unknown]
  - Metastases to lung [Unknown]
  - Malignant mesenteric neoplasm [Unknown]
  - Malignant ascites [Unknown]
  - Carbohydrate antigen 19-9 increased [Unknown]
  - Carcinoembryonic antigen increased [Unknown]
